FAERS Safety Report 5351997-7 (Version None)
Quarter: 2007Q2

REPORT INFORMATION
  Report Type: 
  Country: None (occurrence: None)
  Receive Date: 20070611
  Receipt Date: 20070601
  Transmission Date: 20071010
  Serious: Yes (Hospitalization)
  Sender: FDA-Public Use
  Company Number: PHEH2007US08171

PATIENT
  Age: 44 Year
  Sex: Male

DRUGS (7)
  1. TEKTURNA [Suspect]
     Indication: HYPERTENSION
     Dosage: 150 MG, QD
     Route: 048
     Dates: start: 20070523, end: 20070530
  2. REYATAZ [Concomitant]
  3. EMTRICITABINE [Concomitant]
  4. TENOFOVIR [Concomitant]
  5. INVIRASE [Concomitant]
  6. LOTREL [Concomitant]
  7. HYDROCHLOROTHIAZIDE [Concomitant]

REACTIONS (2)
  - HYPOTENSION [None]
  - RENAL FAILURE [None]
